FAERS Safety Report 15288625 (Version 1)
Quarter: 2018Q3

REPORT INFORMATION
  Report Type: Spontaneous
  Country: US (occurrence: US)
  Receive Date: 20180802
  Receipt Date: 20180802
  Transmission Date: 20181010
  Serious: No
  Sender: FDA-Public Use
  Company Number: None

PATIENT
  Age: 74 Year
  Sex: Male
  Weight: 108 kg

DRUGS (14)
  1. METFORMIN HCL [Concomitant]
     Active Substance: METFORMIN HYDROCHLORIDE
  2. ELIQUIS [Concomitant]
     Active Substance: APIXABAN
  3. ATORVASTATIN [Concomitant]
     Active Substance: ATORVASTATIN
  4. CLOBETASOL PROPIONATE. [Concomitant]
     Active Substance: CLOBETASOL PROPIONATE
  5. CALCIUM 500+ D [Concomitant]
  6. DUTASTERIDE. [Concomitant]
     Active Substance: DUTASTERIDE
  7. ACLOVATE [Concomitant]
     Active Substance: ALCLOMETASONE DIPROPIONATE
  8. AMLODIPINE BESYLATE. [Concomitant]
     Active Substance: AMLODIPINE BESYLATE
  9. RAPAFLO [Concomitant]
     Active Substance: SILODOSIN
  10. ZYTIGA [Suspect]
     Active Substance: ABIRATERONE ACETATE
     Indication: NEOPLASM MALIGNANT
     Route: 048
     Dates: start: 20180529, end: 20180802
  11. ASPITIN ADULT LOW STRENGTH [Concomitant]
  12. LOSARTAN POTASSIUM. [Concomitant]
     Active Substance: LOSARTAN POTASSIUM
  13. METOPROLOL TARTRATE. [Concomitant]
     Active Substance: METOPROLOL TARTRATE
  14. PREDNISONE. [Concomitant]
     Active Substance: PREDNISONE

REACTIONS (2)
  - Fatigue [None]
  - Disease progression [None]
